FAERS Safety Report 24642831 (Version 1)
Quarter: 2024Q4

REPORT INFORMATION
  Report Type: Spontaneous
  Country: US (occurrence: US)
  Receive Date: 20241120
  Receipt Date: 20241120
  Transmission Date: 20250115
  Serious: No
  Sender: BRISTOL-MYERS SQUIBB COMPANY
  Company Number: US-BRISTOL-MYERS SQUIBB COMPANY-2024-180762

PATIENT
  Age: 80 Year
  Sex: Female
  Weight: 63.5 kg

DRUGS (2)
  1. POMALYST [Suspect]
     Active Substance: POMALIDOMIDE
     Indication: Plasma cell myeloma
     Dosage: UNKNOWN
     Route: 048
  2. XPOVIO [Suspect]
     Active Substance: SELINEXOR
     Indication: Product used for unknown indication

REACTIONS (1)
  - Fatigue [Not Recovered/Not Resolved]
